FAERS Safety Report 6058005-3 (Version None)
Quarter: 2009Q1

REPORT INFORMATION
  Report Type: 
  Country: None (occurrence: None)
  Receive Date: 20090129
  Receipt Date: 20090127
  Transmission Date: 20090719
  Serious: Yes (Other)
  Sender: FDA-Public Use
  Company Number: US-B.I. PHARMACEUTICALS,INC./RIDGEFIELD-2009-BP-01038BP

PATIENT
  Sex: Female

DRUGS (2)
  1. COMBIVENT [Suspect]
  2. NITROGLYCERIN [Suspect]
     Indication: CORONARY ARTERY DISEASE

REACTIONS (3)
  - BREATH ALCOHOL TEST POSITIVE [None]
  - CHEST PAIN [None]
  - DYSPNOEA [None]
